FAERS Safety Report 12911822 (Version 1)
Quarter: 2016Q4

REPORT INFORMATION
  Report Type: Spontaneous
  Country: US (occurrence: US)
  Receive Date: 20161102
  Receipt Date: 20161102
  Transmission Date: 20170207
  Serious: Yes (Death)
  Sender: FDA-Public Use
  Company Number: None

PATIENT
  Age: 82 Year
  Sex: Male
  Weight: 61.5 kg

DRUGS (1)
  1. LISINOPRIL. [Suspect]
     Active Substance: LISINOPRIL
     Route: 048
     Dates: start: 20150821, end: 20160819

REACTIONS (4)
  - Metabolic acidosis [None]
  - Acute kidney injury [None]
  - Mental status changes [None]
  - Hyperkalaemia [None]

NARRATIVE: CASE EVENT DATE: 20160819
